FAERS Safety Report 4622809-1 (Version None)
Quarter: 2005Q1

REPORT INFORMATION
  Report Type: 
  Country: None (occurrence: None)
  Receive Date: 20050330
  Receipt Date: 20041210
  Transmission Date: 20050727
  Serious: Yes (Hospitalization, Other)
  Sender: FDA-Public Use
  Company Number: PHNU2004DE04147

PATIENT
  Age: 10 Year
  Sex: Female
  Weight: 40 kg

DRUGS (3)
  1. VOLTAREN [Suspect]
     Dosage: 100 MG, ONCE/SINGLE
     Route: 054
     Dates: start: 20041208, end: 20041208
  2. DYNEXAN [Concomitant]
     Indication: APHTHOUS STOMATITIS
  3. DEXPANTHENOL [Concomitant]
     Indication: APHTHOUS STOMATITIS

REACTIONS (17)
  - ABDOMINAL PAIN [None]
  - ACCIDENTAL EXPOSURE [None]
  - ANAPHYLACTIC SHOCK [None]
  - APHTHOUS STOMATITIS [None]
  - BLOOD PRESSURE DECREASED [None]
  - CIRCULATORY COLLAPSE [None]
  - COLD SWEAT [None]
  - DIARRHOEA [None]
  - DIZZINESS [None]
  - ERYTHEMA [None]
  - LEUKOCYTOSIS [None]
  - PALLOR [None]
  - RASH [None]
  - RASH MACULAR [None]
  - TREMOR [None]
  - TYMPANIC MEMBRANE HYPERAEMIA [None]
  - VOMITING [None]
